FAERS Safety Report 7601624-0 (Version None)
Quarter: 2011Q3

REPORT INFORMATION
  Report Type: 
  Country: None (occurrence: None)
  Receive Date: 20110711
  Receipt Date: 20110629
  Transmission Date: 20111222
  Serious: Yes (Other)
  Sender: FDA-Public Use
  Company Number: PHHY2011DE58181

PATIENT
  Age: 66 Year
  Sex: Female

DRUGS (2)
  1. CHEMOTHERAPEUTICS [Concomitant]
  2. AREDIA [Suspect]
     Indication: MULTIPLE MYELOMA
     Dosage: UNK
     Dates: start: 20040701, end: 20071018

REACTIONS (1)
  - OSTEONECROSIS OF JAW [None]
